FAERS Safety Report 6425750-7 (Version None)
Quarter: 2009Q4

REPORT INFORMATION
  Report Type: 
  Country: None (occurrence: None)
  Receive Date: 20091103
  Receipt Date: 20091026
  Transmission Date: 20100525
  Serious: Yes (Hospitalization)
  Sender: FDA-Public Use
  Company Number: US-GENENTECH-292895

PATIENT
  Age: 68 Year
  Sex: Female

DRUGS (3)
  1. RITUXAN [Suspect]
     Indication: NON-HODGKIN'S LYMPHOMA
     Route: 042
  2. FLUDARABINE [Concomitant]
     Indication: NON-HODGKIN'S LYMPHOMA
  3. CYTOXAN [Concomitant]
     Indication: NON-HODGKIN'S LYMPHOMA

REACTIONS (2)
  - BONE MARROW FAILURE [None]
  - SINUSITIS [None]
